FAERS Safety Report 25287140 (Version 2)
Quarter: 2025Q2

REPORT INFORMATION
  Report Type: Spontaneous
  Country: JP (occurrence: JP)
  Receive Date: 20250509
  Receipt Date: 20250519
  Transmission Date: 20250717
  Serious: No
  Sender: MYLAN
  Company Number: JP-MYLANLABS-2025M1039200

PATIENT
  Age: 29 Month
  Sex: Male

DRUGS (4)
  1. GABAPENTIN [Suspect]
     Active Substance: GABAPENTIN
     Indication: Epilepsy
     Dosage: 10 MILLIGRAM/KILOGRAM, QD (10 MG/KG/ DAY)
     Dates: start: 20250430
  2. GABAPENTIN [Suspect]
     Active Substance: GABAPENTIN
     Dosage: 10 MILLIGRAM/KILOGRAM, QD (10 MG/KG/ DAY)
     Route: 048
     Dates: start: 20250430
  3. GABAPENTIN [Suspect]
     Active Substance: GABAPENTIN
     Dosage: 10 MILLIGRAM/KILOGRAM, QD (10 MG/KG/ DAY)
     Route: 048
     Dates: start: 20250430
  4. GABAPENTIN [Suspect]
     Active Substance: GABAPENTIN
     Dosage: 10 MILLIGRAM/KILOGRAM, QD (10 MG/KG/ DAY)
     Dates: start: 20250430

REACTIONS (2)
  - Off label use [Unknown]
  - Product use complaint [Recovered/Resolved]

NARRATIVE: CASE EVENT DATE: 20250430
